FAERS Safety Report 20450849 (Version 2)
Quarter: 2022Q1

REPORT INFORMATION
  Report Type: Spontaneous
  Country: US (occurrence: US)
  Receive Date: 20220209
  Receipt Date: 20220225
  Transmission Date: 20220424
  Serious: Yes (Hospitalization, Congenital Anomaly)
  Sender: FDA-Public Use
  Company Number: US-PHARMAAND-2022PHR00034

PATIENT
  Age: 0 Year
  Sex: Male

DRUGS (1)
  1. PEGASYS [Suspect]
     Active Substance: PEGINTERFERON ALFA-2A

REACTIONS (5)
  - Respiratory disorder neonatal [Unknown]
  - Premature baby [Recovered/Resolved]
  - Apnoea [Recovered/Resolved]
  - Trisomy 21 [Not Recovered/Not Resolved]
  - Paternal exposure timing unspecified [Recovered/Resolved]

NARRATIVE: CASE EVENT DATE: 20040216
